FAERS Safety Report 10783370 (Version 4)
Quarter: 2016Q4

REPORT INFORMATION
  Report Type: Spontaneous
  Country: US (occurrence: US)
  Receive Date: 20150210
  Receipt Date: 20161021
  Transmission Date: 20170206
  Serious: No
  Sender: FDA-Public Use
  Company Number: US-GLAXOSMITHKLINE-US2014GSK050144

PATIENT
  Sex: Female

DRUGS (1)
  1. VENTOLIN HFA [Suspect]
     Active Substance: ALBUTEROL SULFATE
     Indication: ASTHMA
     Dosage: 90 UG, PRN
     Route: 055
     Dates: start: 1977

REACTIONS (8)
  - Feeling abnormal [Not Recovered/Not Resolved]
  - Conjunctivitis [Unknown]
  - Dyspnoea [Unknown]
  - Intentional product use issue [Not Recovered/Not Resolved]
  - Extra dose administered [Not Recovered/Not Resolved]
  - Drug administration error [Not Recovered/Not Resolved]
  - Malaise [Unknown]
  - Multiple allergies [Not Recovered/Not Resolved]
